FAERS Safety Report 21838325 (Version 1)
Quarter: 2023Q1

REPORT INFORMATION
  Report Type: Spontaneous
  Country: CA (occurrence: CA)
  Receive Date: 20230109
  Receipt Date: 20230109
  Transmission Date: 20230417
  Serious: Yes (Hospitalization)
  Sender: FDA-Public Use
  Company Number: CA-TEVA-2023-CA-2842881

PATIENT
  Age: 8 Year
  Sex: Male
  Weight: 19 kg

DRUGS (4)
  1. CLOBAZAM [Suspect]
     Active Substance: CLOBAZAM
     Indication: Myoclonic epilepsy
     Dosage: 10 MILLIGRAM DAILY;
     Route: 048
  2. LEVETIRACETAM [Concomitant]
     Active Substance: LEVETIRACETAM
     Indication: Product used for unknown indication
     Route: 065
  3. METHYLPHENIDATE [Concomitant]
     Active Substance: METHYLPHENIDATE
     Indication: Product used for unknown indication
  4. VALPROIC ACID [Concomitant]
     Active Substance: VALPROIC ACID
     Indication: Product used for unknown indication

REACTIONS (4)
  - Decreased appetite [Recovered/Resolved]
  - Gait inability [Recovered/Resolved]
  - General physical health deterioration [Recovered/Resolved]
  - Somnolence [Recovered/Resolved]
